FAERS Safety Report 12465369 (Version 4)
Quarter: 2016Q3

REPORT INFORMATION
  Report Type: Spontaneous
  Country: JP (occurrence: JP)
  Receive Date: 20160614
  Receipt Date: 20160713
  Transmission Date: 20161109
  Serious: Yes (Death, Hospitalization, Other)
  Sender: FDA-Public Use
  Company Number: PHJP2016JP015736

PATIENT
  Age: 63 Year
  Sex: Female

DRUGS (1)
  1. ZOMETA [Suspect]
     Active Substance: ZOLEDRONIC ACID
     Indication: METASTASES TO BONE
     Dosage: 4 MG, UNK
     Route: 041
     Dates: start: 201210

REACTIONS (10)
  - Osteonecrosis of jaw [Not Recovered/Not Resolved]
  - Jaw fracture [Unknown]
  - Seizure [Fatal]
  - Breast cancer [Fatal]
  - Erythema [Unknown]
  - Feeding disorder [Unknown]
  - Purulence [Unknown]
  - Fistula [Unknown]
  - Lymphadenopathy [Unknown]
  - Tenderness [Unknown]

NARRATIVE: CASE EVENT DATE: 201409
